FAERS Safety Report 10304879 (Version 1)
Quarter: 2014Q3

REPORT INFORMATION
  Report Type: Spontaneous
  Country: US (occurrence: None)
  Receive Date: 20140710
  Receipt Date: 20140710
  Transmission Date: 20150326
  Serious: Yes (Other)
  Sender: FDA-Public Use
  Company Number: None

PATIENT
  Age: 86 Year
  Sex: Male
  Weight: 74.84 kg

DRUGS (5)
  1. AMLODIPINE [Concomitant]
     Active Substance: AMLODIPINE BESYLATE
  2. BENAXEPRIL [Concomitant]
  3. SATALOL [Concomitant]
  4. METOPROLOL SUCCINATE EXTENDED-RELEASE [Suspect]
     Active Substance: METOPROLOL SUCCINATE
     Indication: HYPERTENSION
     Dosage: 1 TAB DAILY WITH FOOD
     Route: 048
     Dates: start: 201304, end: 201406
  5. ELQUIS [Concomitant]

REACTIONS (2)
  - Product substitution issue [None]
  - Unevaluable event [None]

NARRATIVE: CASE EVENT DATE: 201405
